FAERS Safety Report 8875600 (Version 1)
Quarter: 2012Q4

REPORT INFORMATION
  Report Type: 
  Country: US (occurrence: US)
  Receive Date: 20121030
  Receipt Date: 20121030
  Transmission Date: 20130627
  Serious: No
  Sender: FDA-Public Use
  Company Number: US-ABBOTT-11P-163-0871282-00

PATIENT
  Age: 21 Year
  Sex: Female
  Weight: 83.08 kg

DRUGS (7)
  1. KALETRA TABLETS 200MG/50MG [Suspect]
     Indication: HIV INFECTION
     Dosage: Every 12 hours
     Route: 048
     Dates: start: 20110310
  2. KALETRA TABLETS [Suspect]
     Indication: HIV INFECTION
     Dosage: Every 12 hours
     Route: 048
  3. KALETRA TABLETS [Suspect]
     Route: 048
  4. ZOFRAN [Concomitant]
     Indication: PRODUCT USED FOR UNKNOWN INDICATION
     Dosage: Every 8 hours as needed
     Dates: start: 20110209, end: 20110915
  5. HEPARIN [Concomitant]
     Indication: PRODUCT USED FOR UNKNOWN INDICATION
     Dates: start: 20110209, end: 20110915
  6. COMBIVIR [Concomitant]
     Indication: PRODUCT USED FOR UNKNOWN INDICATION
  7. PRENATAL VITAMINS [Concomitant]
     Indication: PRODUCT USED FOR UNKNOWN INDICATION

REACTIONS (3)
  - Nausea [Unknown]
  - Vomiting [Unknown]
  - Bulimia nervosa [Unknown]
